FAERS Safety Report 11615093 (Version 1)
Quarter: 2015Q4

REPORT INFORMATION
  Report Type: Spontaneous
  Country: FR (occurrence: FR)
  Receive Date: 20151009
  Receipt Date: 20151009
  Transmission Date: 20160304
  Serious: Yes (Death, Life-Threatening)
  Sender: FDA-Public Use
  Company Number: FR-JNJFOC-20151004678

PATIENT
  Sex: Female

DRUGS (7)
  1. APROVEL [Concomitant]
     Active Substance: IRBESARTAN
     Route: 065
  2. XARELTO [Suspect]
     Active Substance: RIVAROXABAN
     Indication: EMBOLISM VENOUS
     Route: 048
     Dates: start: 20150120, end: 20150121
  3. HEPARIN SODIUM. [Suspect]
     Active Substance: HEPARIN SODIUM
     Indication: PULMONARY EMBOLISM
     Route: 042
     Dates: start: 20150116, end: 20150120
  4. STILNOX [Concomitant]
     Active Substance: ZOLPIDEM TARTRATE
     Route: 065
  5. DIFFU K [Concomitant]
     Active Substance: POTASSIUM CHLORIDE
     Route: 065
  6. INEXIUM [Concomitant]
     Active Substance: ESOMEPRAZOLE
     Route: 065
  7. XARELTO [Suspect]
     Active Substance: RIVAROXABAN
     Indication: PULMONARY EMBOLISM
     Route: 048
     Dates: start: 20150120, end: 20150121

REACTIONS (1)
  - Pulmonary embolism [Fatal]

NARRATIVE: CASE EVENT DATE: 20150121
